FAERS Safety Report 7313775-9 (Version None)
Quarter: 2011Q1

REPORT INFORMATION
  Report Type: 
  Country: None (occurrence: None)
  Receive Date: 20110225
  Receipt Date: 20110218
  Transmission Date: 20110831
  Serious: Yes (Other)
  Sender: FDA-Public Use
  Company Number: US-PFIZER INC-2011036506

PATIENT
  Sex: Female

DRUGS (4)
  1. PREMARIN [Suspect]
     Dosage: UNK
  2. IBANDRONATE SODIUM [Suspect]
     Dosage: UNKNOWN
  3. FOSAMAX [Suspect]
     Dosage: UNK
  4. ACTONEL [Suspect]
     Dosage: UNK

REACTIONS (6)
  - WRIST FRACTURE [None]
  - SPINAL MENINGEAL CYST [None]
  - OSTEOPENIA [None]
  - OSTEOPOROSIS [None]
  - PATELLA FRACTURE [None]
  - GAIT DISTURBANCE [None]
